FAERS Safety Report 11863349 (Version 1)
Quarter: 2015Q4

REPORT INFORMATION
  Report Type: Spontaneous
  Country: US (occurrence: None)
  Receive Date: 20151222
  Receipt Date: 20151222
  Transmission Date: 20160305
  Serious: Yes (Other)
  Sender: FDA-Public Use
  Company Number: None

PATIENT
  Sex: Female

DRUGS (14)
  1. VISTARIL [Concomitant]
     Active Substance: HYDROXYZINE PAMOATE
  2. GLYBURIZIDE/METFORMIN [Concomitant]
  3. LYRICA [Concomitant]
     Active Substance: PREGABALIN
  4. LANTUS [Concomitant]
     Active Substance: INSULIN GLARGINE
  5. PERCOCET [Concomitant]
     Active Substance: ACETAMINOPHEN\OXYCODONE HYDROCHLORIDE
  6. MAXALT [Concomitant]
     Active Substance: RIZATRIPTAN BENZOATE
  7. PHENERGAN [Concomitant]
     Active Substance: PROMETHAZINE HYDROCHLORIDE
  8. BENADRYL [Concomitant]
     Active Substance: DIPHENHYDRAMINE HYDROCHLORIDE
  9. STELARA [Concomitant]
     Active Substance: USTEKINUMAB
  10. TOPAMAX [Suspect]
     Active Substance: TOPIRAMATE
     Indication: MIGRAINE
  11. CLONAZEPAM. [Concomitant]
     Active Substance: CLONAZEPAM
  12. SOMA [Concomitant]
     Active Substance: CARISOPRODOL
  13. IMODIUM [Concomitant]
     Active Substance: LOPERAMIDE HYDROCHLORIDE
  14. ZEGRID [Concomitant]

REACTIONS (5)
  - Dysgeusia [None]
  - Personality disorder [None]
  - Feeling abnormal [None]
  - Mood altered [None]
  - Depression [None]
